FAERS Safety Report 7423885-3 (Version None)
Quarter: 2011Q2

REPORT INFORMATION
  Report Type: 
  Country: None (occurrence: None)
  Receive Date: 20110419
  Receipt Date: 20110412
  Transmission Date: 20111010
  Serious: Yes (Hospitalization)
  Sender: FDA-Public Use
  Company Number: A0788279A

PATIENT
  Age: 58 Year
  Sex: Male

DRUGS (3)
  1. AVANDIA [Suspect]
     Indication: TYPE 2 DIABETES MELLITUS
     Dosage: 8MG PER DAY
     Route: 048
     Dates: start: 19991201, end: 20040216
  2. NAPROSYN [Concomitant]
  3. INSULIN [Concomitant]

REACTIONS (18)
  - CAROTID ARTERY STENOSIS [None]
  - PNEUMONIA [None]
  - DEPRESSED LEVEL OF CONSCIOUSNESS [None]
  - CEREBRAL INFARCTION [None]
  - HYPERCHOLESTEROLAEMIA [None]
  - BLOOD PRESSURE DECREASED [None]
  - ISCHAEMIC HEPATITIS [None]
  - DIABETES MELLITUS INADEQUATE CONTROL [None]
  - MYOCARDIAL INFARCTION [None]
  - LETHARGY [None]
  - CEREBROVASCULAR ACCIDENT [None]
  - LEUKOCYTOSIS [None]
  - CONFUSIONAL STATE [None]
  - VENTRICULAR TACHYCARDIA [None]
  - HYPOXIC-ISCHAEMIC ENCEPHALOPATHY [None]
  - ARTERIOSCLEROSIS CORONARY ARTERY [None]
  - TRANSIENT ISCHAEMIC ATTACK [None]
  - RESPIRATORY FAILURE [None]
